FAERS Safety Report 9724852 (Version 2)
Quarter: 2013Q4

REPORT INFORMATION
  Report Type: Spontaneous
  Country: US (occurrence: US)
  Receive Date: 20131202
  Receipt Date: 20131217
  Transmission Date: 20140711
  Serious: Yes (Other)
  Sender: FDA-Public Use
  Company Number: US-RB-061011-13

PATIENT
  Age: 57 Year
  Sex: Female

DRUGS (5)
  1. SUBOXONE TABLET [Suspect]
     Indication: PAIN
     Dosage: TAKING 2 AND 1/2 TABLETS EVERY DAY
     Route: 060
     Dates: start: 2009, end: 2012
  2. SUBOXONE FILM [Suspect]
     Dosage: SUBOXONE FILM; THE PATIENT WAS CUTTING THE FILM AND TAKING 2 AND A HALF OF FILM DAILY
     Route: 060
     Dates: start: 2012, end: 20131122
  3. SUBOXONE FILM [Suspect]
     Indication: PAIN
     Dosage: SUBOXONE FILM;  PHYSICIAN ADVISED PATIENT TO INCREASE DOSE TO TREAT PAIN
     Route: 060
     Dates: start: 20131122, end: 201311
  4. SUBOXONE FILM [Suspect]
     Dosage: SUBOXONE FILM
     Route: 060
     Dates: start: 201311
  5. DEPAKOTE [Concomitant]
     Indication: BIPOLAR DISORDER
     Route: 048

REACTIONS (5)
  - Off label use [Not Recovered/Not Resolved]
  - Wrong technique in drug usage process [Recovered/Resolved]
  - Basal cell carcinoma [Recovered/Resolved]
  - Procedural pain [Recovering/Resolving]
  - Postoperative wound infection [Recovering/Resolving]
